FAERS Safety Report 6578654-3 (Version None)
Quarter: 2010Q1

REPORT INFORMATION
  Report Type: 
  Country: None (occurrence: None)
  Receive Date: 20100211
  Receipt Date: 20100204
  Transmission Date: 20100710
  Serious: No
  Sender: FDA-Public Use
  Company Number: BE-AMGEN-UK376035

PATIENT
  Age: 73 Year
  Sex: Female

DRUGS (9)
  1. NPLATE [Suspect]
     Indication: IDIOPATHIC THROMBOCYTOPENIC PURPURA
     Route: 058
     Dates: start: 20091112
  2. ALDACTONE [Concomitant]
     Route: 065
  3. EMCONCOR [Concomitant]
     Route: 065
  4. GLURENORM [Concomitant]
     Route: 065
  5. LANITOP [Concomitant]
     Route: 065
  6. LASIX [Concomitant]
     Route: 065
  7. PROCUR [Concomitant]
     Route: 065
  8. TRITACE [Concomitant]
     Route: 065
  9. LORMETAZEPAM [Concomitant]
     Route: 065

REACTIONS (1)
  - RASH PRURITIC [None]
